FAERS Safety Report 5814655-8 (Version None)
Quarter: 2008Q3

REPORT INFORMATION
  Report Type: 
  Country: None (occurrence: None)
  Receive Date: 20080718
  Receipt Date: 20070608
  Transmission Date: 20090109
  Serious: No
  Sender: FDA-Public Use
  Company Number: US-KINGPHARMUSA00001-K200700614

PATIENT

DRUGS (1)
  1. LEVOXYL [Suspect]
     Indication: HYPOTHYROIDISM
     Dosage: 50 MCG, QD
     Route: 048
     Dates: start: 19860101

REACTIONS (7)
  - DIZZINESS [None]
  - DYSPHAGIA [None]
  - HEART RATE INCREASED [None]
  - MALAISE [None]
  - ORAL DISCOMFORT [None]
  - RESPIRATORY RATE INCREASED [None]
  - WEIGHT DECREASED [None]
